FAERS Safety Report 11659308 (Version 1)
Quarter: 2015Q4

REPORT INFORMATION
  Report Type: Spontaneous
  Country: US (occurrence: US)
  Receive Date: 20151026
  Receipt Date: 20151026
  Transmission Date: 20160304
  Serious: Yes (Hospitalization, Other)
  Sender: FDA-Public Use
  Company Number: US-ALEMBIC PHARMACUETICALS LIMITED-2015SCAL000748

PATIENT
  Age: 36 Year
  Sex: Male

DRUGS (5)
  1. EMTRICITABINE [Concomitant]
     Active Substance: EMTRICITABINE
     Indication: PRODUCT USED FOR UNKNOWN INDICATION
     Dosage: 200 MG, QD
  2. RALTEGRAVIR. [Concomitant]
     Active Substance: RALTEGRAVIR
     Indication: PRODUCT USED FOR UNKNOWN INDICATION
     Dosage: 400 MG, BID
  3. LAMOTRIGINE. [Suspect]
     Active Substance: LAMOTRIGINE
     Dosage: 13.5 G, UNK (90 TABLETS OF 150 MG)
     Route: 048
  4. TENOFOVIR [Concomitant]
     Active Substance: TENOFOVIR
     Indication: PRODUCT USED FOR UNKNOWN INDICATION
     Dosage: 300 MG, QD
  5. LAMOTRIGINE. [Suspect]
     Active Substance: LAMOTRIGINE
     Indication: PRODUCT USED FOR UNKNOWN INDICATION
     Dosage: 150 MG, BID, IMMEDIATE RELEASE
     Route: 048

REACTIONS (13)
  - Bundle branch block right [Recovered/Resolved]
  - Critical illness myopathy [Unknown]
  - Muscle spasticity [Unknown]
  - Electrocardiogram QT prolonged [Recovered/Resolved]
  - Electrocardiogram QRS complex prolonged [Recovered/Resolved]
  - Generalised tonic-clonic seizure [Unknown]
  - Blood bicarbonate decreased [Unknown]
  - Sinus tachycardia [Recovered/Resolved]
  - Blood lactic acid increased [Unknown]
  - Immobile [Unknown]
  - Status epilepticus [Unknown]
  - Suicide attempt [Unknown]
  - Overdose [Unknown]
